FAERS Safety Report 8376404-1 (Version None)
Quarter: 2012Q2

REPORT INFORMATION
  Report Type: 
  Country: None (occurrence: None)
  Receive Date: 20120522
  Receipt Date: 20120514
  Transmission Date: 20120825
  Serious: Yes (Hospitalization, Other)
  Sender: FDA-Public Use
  Company Number: PHHY2012CH028375

PATIENT
  Age: 41 Year
  Sex: Female

DRUGS (12)
  1. CELLCEPT [Concomitant]
     Dosage: UNK UKN, UNK
  2. TORSEMIDE [Concomitant]
     Dosage: UNK UKN, UNK
  3. NEXIUM [Concomitant]
     Dosage: UNK UKN, UNK
  4. LERCANIDIPINE [Concomitant]
     Dosage: UNK UKN, UNK
  5. BACTRIM DS [Concomitant]
     Dosage: UNK UKN, UNK
  6. CERTICAN [Suspect]
     Indication: IMMUNOSUPPRESSION
     Dosage: 10 MG, BID
     Dates: start: 20091015
  7. ARANESP [Concomitant]
  8. TRAMADOL HYDROCHLORIDE [Concomitant]
  9. LESCOL [Concomitant]
     Dosage: UNK UKN, UNK
  10. AMPHOTERICIN B [Concomitant]
     Dosage: UNK UKN, UNK
  11. BISOPROLOL FUMARATE [Concomitant]
     Dosage: UNK UG/ML, UNK
  12. CALCIMAGON [Concomitant]

REACTIONS (7)
  - HAEMOPTYSIS [None]
  - PYREXIA [None]
  - DYSPNOEA [None]
  - COUGH [None]
  - LUNG DISORDER [None]
  - LUNG INFILTRATION [None]
  - PULMONARY HAEMORRHAGE [None]
